FAERS Safety Report 16330018 (Version 1)
Quarter: 2019Q2

REPORT INFORMATION
  Report Type: Spontaneous
  Country: US (occurrence: US)
  Receive Date: 20190412
  Receipt Date: 20190412
  Transmission Date: 20190711
  Serious: Yes (Hospitalization)
  Sender: FDA-Public Use
  Company Number: None

PATIENT
  Age: 35 Year
  Sex: Female

DRUGS (13)
  1. MONTELUKAST [Concomitant]
     Active Substance: MONTELUKAST SODIUM
  2. LEVALBUTEROL. [Concomitant]
     Active Substance: LEVALBUTEROL
  3. CAYSTON [Concomitant]
     Active Substance: AZTREONAM
  4. PANTAPRASOLE [Concomitant]
  5. PULMOZYME [Suspect]
     Active Substance: DORNASE ALFA
     Indication: CYSTIC FIBROSIS
     Dosage: ?          OTHER DOSE:1 AMPULE;OTHER ROUTE:INHAL VIA NEBULIZER?
     Dates: start: 20130522
  6. A-HYDROCORT [Concomitant]
     Active Substance: HYDROCORTISONE SODIUM SUCCINATE
  7. PH MILK MAGN SUS  REGULAR [Concomitant]
  8. LIDOCAINE PAD [Concomitant]
  9. PRENATAL TAB [Concomitant]
  10. FLUDROCORT [Concomitant]
  11. GIANVI [Concomitant]
     Active Substance: DROSPIRENONE\ETHINYL ESTRADIOL
  12. LEVOTHYROXINE. [Concomitant]
     Active Substance: LEVOTHYROXINE
  13. CETRIZIN [Concomitant]

REACTIONS (1)
  - Cystic fibrosis [None]

NARRATIVE: CASE EVENT DATE: 20190402
